FAERS Safety Report 5203093-7 (Version None)
Quarter: 2007Q1

REPORT INFORMATION
  Report Type: 
  Country: None (occurrence: None)
  Receive Date: 20070109
  Receipt Date: 20070104
  Transmission Date: 20070707
  Serious: Yes (Congenital Anomaly, Other)
  Sender: FDA-Public Use
  Company Number: GB-ABBOTT-06P-167-0348721-00

PATIENT

DRUGS (1)
  1. HUMIRA [Suspect]
     Indication: TRANSMISSION OF DRUG VIA SEMEN

REACTIONS (2)
  - ABORTION SPONTANEOUS [None]
  - FOETAL GROWTH RETARDATION [None]
